FAERS Safety Report 17297480 (Version 1)
Quarter: 2020Q1

REPORT INFORMATION
  Report Type: Spontaneous
  Country: US (occurrence: US)
  Receive Date: 20200121
  Receipt Date: 20200121
  Transmission Date: 20200409
  Serious: Yes (Hospitalization)
  Sender: FDA-Public Use
  Company Number: US-ASTRAZENECA-2020SE06612

PATIENT
  Age: 17839 Day
  Sex: Female
  Weight: 69.4 kg

DRUGS (1)
  1. BYDUREON BCISE [Suspect]
     Active Substance: EXENATIDE
     Indication: TYPE 2 DIABETES MELLITUS
     Route: 058
     Dates: start: 201906

REACTIONS (2)
  - Myocardial infarction [Recovering/Resolving]
  - Hand-foot-and-mouth disease [Recovered/Resolved]

NARRATIVE: CASE EVENT DATE: 20191025
